FAERS Safety Report 12168611 (Version 1)
Quarter: 2016Q1

REPORT INFORMATION
  Report Type: Report from Study
  Country: US (occurrence: None)
  Receive Date: 20160310
  Receipt Date: 20160310
  Transmission Date: 20160526
  Serious: Yes (Death, Other)
  Sender: FDA-Public Use
  Company Number: US-MDT-ADR-2016-00422

PATIENT
  Age: 47 Year
  Sex: Male

DRUGS (2)
  1. BACLOFEN INTRATHECAL 500MCG/ML [Suspect]
     Active Substance: BACLOFEN
     Indication: TUMOUR PAIN
     Dosage: 199.88MCG/DAY
  2. DILAUDID [Suspect]
     Active Substance: HYDROMORPHONE HYDROCHLORIDE
     Indication: TUMOUR PAIN
     Dosage: 0.9994MG/DAY

REACTIONS (1)
  - Renal cancer metastatic [None]
